FAERS Safety Report 9407724 (Version 1)
Quarter: 2013Q3

REPORT INFORMATION
  Report Type: Spontaneous
  Country: US (occurrence: US)
  Receive Date: 20130718
  Receipt Date: 20130718
  Transmission Date: 20140515
  Serious: Yes (Hospitalization)
  Sender: FDA-Public Use
  Company Number: US-ELI_LILLY_AND_COMPANY-US201307003348

PATIENT
  Age: 59 Year
  Sex: Female

DRUGS (12)
  1. STRATTERA [Suspect]
     Indication: DISTURBANCE IN ATTENTION
     Dosage: 1 DF, QD
     Route: 048
     Dates: start: 20130409, end: 20130514
  2. STRATTERA [Interacting]
     Indication: MEMORY IMPAIRMENT
  3. AZILECT [Interacting]
     Indication: PARKINSON^S DISEASE
     Dosage: 1 MG, QD
     Route: 048
     Dates: start: 2011
  4. CITALOPRAM [Interacting]
     Indication: DEPRESSION
     Dosage: 40 MG, UNK
     Dates: start: 20130201, end: 20130514
  5. CLONAZEPAM [Concomitant]
  6. TRAZODONE [Concomitant]
     Indication: RAPID EYE MOVEMENTS SLEEP ABNORMAL
     Dosage: 50 MG, QD
     Route: 048
  7. LEVOXYL [Concomitant]
     Indication: AUTOIMMUNE THYROIDITIS
     Dosage: 137 UG, QD
  8. GABAPENTIN [Concomitant]
     Indication: RESTLESS LEGS SYNDROME
     Dosage: 900 MG, UNK
     Route: 048
  9. MIRAPEX [Concomitant]
     Indication: RESTLESS LEGS SYNDROME
     Dosage: 1 MG, QD
     Route: 048
  10. NEXIUM [Concomitant]
     Indication: GASTROOESOPHAGEAL REFLUX DISEASE
     Dosage: 80 MG, QD
  11. FEMHRT [Concomitant]
     Indication: HORMONE REPLACEMENT THERAPY
     Dosage: 1 DF, QD
     Route: 048
  12. PROLIA [Concomitant]
     Indication: OSTEOPOROSIS
     Route: 042

REACTIONS (3)
  - Movement disorder [Recovered/Resolved]
  - Muscle contractions involuntary [Recovered/Resolved]
  - Drug interaction [Unknown]
